FAERS Safety Report 9254683 (Version 1)
Quarter: 2013Q2

REPORT INFORMATION
  Report Type: Report from Study
  Country: FR (occurrence: FR)
  Receive Date: 20130425
  Receipt Date: 20130425
  Transmission Date: 20140414
  Serious: Yes (Other)
  Sender: FDA-Public Use
  Company Number: FR-ASTELLAS-2013EU003581

PATIENT
  Age: 78 Year
  Sex: Male
  Weight: 67 kg

DRUGS (1)
  1. ENZALUTAMIDE [Suspect]
     Indication: ADENOCARCINOMA
     Dosage: 160 MG, UID/QD
     Route: 048
     Dates: start: 20130312, end: 20130408

REACTIONS (3)
  - Malignant neoplasm progression [Not Recovered/Not Resolved]
  - Blood creatinine abnormal [Unknown]
  - Haematuria [Unknown]
